FAERS Safety Report 7705839-2 (Version None)
Quarter: 2011Q3

REPORT INFORMATION
  Report Type: 
  Country: None (occurrence: None)
  Receive Date: 20110824
  Receipt Date: 20110809
  Transmission Date: 20111222
  Serious: Yes (Hospitalization)
  Sender: FDA-Public Use
  Company Number: BR-SANOFI-AVENTIS-2011SA051233

PATIENT
  Age: 71 Year
  Sex: Male
  Weight: 71 kg

DRUGS (12)
  1. APIDRA [Suspect]
     Indication: TYPE 2 DIABETES MELLITUS
     Route: 058
  2. CLOPIDOGREL [Concomitant]
     Indication: CARDIAC DISORDER
     Route: 048
  3. HYDRALAZINE HCL [Concomitant]
     Indication: CARDIAC DISORDER
     Route: 048
  4. FUROSEMIDE [Concomitant]
     Route: 048
  5. CARVEDILOL [Concomitant]
     Indication: CARDIAC DISORDER
     Route: 048
  6. FOLIC ACID [Concomitant]
     Route: 048
  7. AUTOPEN 24 [Suspect]
  8. PANTOPRAZOLE [Concomitant]
     Route: 048
  9. LANTUS [Suspect]
     Indication: TYPE 2 DIABETES MELLITUS
     Route: 058
  10. MONOCORDIL [Concomitant]
     Indication: CARDIAC DISORDER
     Route: 048
  11. CLIKSTAR [Suspect]
  12. ASPIRIN [Concomitant]
     Indication: CARDIAC DISORDER
     Route: 048

REACTIONS (7)
  - LUNG DISORDER [None]
  - OEDEMA PERIPHERAL [None]
  - HYPERGLYCAEMIA [None]
  - RENAL IMPAIRMENT [None]
  - DIZZINESS [None]
  - WEIGHT DECREASED [None]
  - INFARCTION [None]
